FAERS Safety Report 10177336 (Version 6)
Quarter: 2015Q3

REPORT INFORMATION
  Report Type: Report from Study
  Country: US (occurrence: US)
  Receive Date: 20140516
  Receipt Date: 20150702
  Transmission Date: 20151125
  Serious: Yes (Death, Hospitalization, Other)
  Sender: FDA-Public Use
  Company Number: US-BAYER-2014-070411

PATIENT
  Age: 70 Year
  Sex: Male

DRUGS (15)
  1. LYRICA [Concomitant]
     Active Substance: PREGABALIN
  2. BACTRIM [Concomitant]
     Active Substance: SULFAMETHOXAZOLE\TRIMETHOPRIM
  3. XTANDI [Suspect]
     Active Substance: ENZALUTAMIDE
     Indication: HORMONE-REFRACTORY PROSTATE CANCER
     Dosage: 160 MG, QD
     Dates: start: 20140110
  4. CEFADROXIL. [Concomitant]
     Active Substance: CEFADROXIL
  5. WARFARIN [Concomitant]
     Active Substance: WARFARIN
  6. VICODIN [Concomitant]
     Active Substance: ACETAMINOPHEN\HYDROCODONE BITARTRATE
  7. XOFIGO [Suspect]
     Active Substance: RADIUM RA-223 DICHLORIDE
     Indication: PROSTATE CANCER METASTATIC
     Dosage: UNK
     Dates: start: 201402, end: 201402
  8. XOFIGO [Suspect]
     Active Substance: RADIUM RA-223 DICHLORIDE
     Indication: METASTASES TO BONE
     Dosage: UNK
     Dates: start: 2014, end: 2014
  9. FUROSEMIDUM [FUROSEMIDE] [Concomitant]
  10. FOLIC ACID. [Concomitant]
     Active Substance: FOLIC ACID
  11. MESALAZINE [Concomitant]
     Active Substance: MESALAMINE
  12. XOFIGO [Suspect]
     Active Substance: RADIUM RA-223 DICHLORIDE
     Indication: PROSTATE CANCER METASTATIC
     Dosage: UNK
     Dates: start: 201405, end: 201405
  13. VESICARE [Suspect]
     Active Substance: SOLIFENACIN SUCCINATE
     Indication: PRODUCT USED FOR UNKNOWN INDICATION
     Dosage: 10 MG, QD
     Dates: start: 20131212
  14. LIPITOR [Concomitant]
     Active Substance: ATORVASTATIN CALCIUM
  15. POTASSIUM CHLORIDE. [Concomitant]
     Active Substance: POTASSIUM CHLORIDE

REACTIONS (13)
  - Eye pain [Recovering/Resolving]
  - Proctitis [None]
  - Hypercalcaemia [None]
  - Blindness [None]
  - Prescribed overdose [Not Recovered/Not Resolved]
  - Death [Fatal]
  - Proctalgia [None]
  - Photophobia [Recovering/Resolving]
  - Skin hyperpigmentation [Not Recovered/Not Resolved]
  - Iridocyclitis [Recovering/Resolving]
  - Enteritis [None]
  - Weight decreased [Not Recovered/Not Resolved]
  - Radiation injury [None]

NARRATIVE: CASE EVENT DATE: 20140421
